FAERS Safety Report 25905694 (Version 1)
Quarter: 2025Q4

REPORT INFORMATION
  Report Type: Spontaneous
  Country: CN (occurrence: CN)
  Receive Date: 20251010
  Receipt Date: 20251010
  Transmission Date: 20260118
  Serious: Yes (Other)
  Sender: Onesource Specialty Pharma
  Company Number: CN-STRIDES ARCOLAB LIMITED-2025OS000934

PATIENT
  Age: 41 Year
  Sex: Male

DRUGS (19)
  1. ETOPOSIDE [Suspect]
     Active Substance: ETOPOSIDE
     Indication: Diffuse large B-cell lymphoma stage IV
     Dosage: R-DA-EPOCH REGIMEN; 4 CYCLES; DOSE-ADJUSTED
     Route: 065
  2. ETOPOSIDE [Suspect]
     Active Substance: ETOPOSIDE
     Indication: Bone marrow conditioning regimen
     Dosage: R-ICE REGIMEN; 2 CYCLES
     Route: 065
  3. ETOPOSIDE [Suspect]
     Active Substance: ETOPOSIDE
     Dosage: BEAM CONDITIONING REGIMEN
     Route: 065
     Dates: start: 20220414
  4. RITUXIMAB [Suspect]
     Active Substance: RITUXIMAB
     Indication: Diffuse large B-cell lymphoma stage IV
     Dosage: R-DA-EPOCH REGIMEN; 4 CYCLES
     Route: 065
  5. RITUXIMAB [Suspect]
     Active Substance: RITUXIMAB
     Dosage: R-ICE REGIMEN; 2 CYCLES
     Route: 065
  6. RITUXIMAB [Suspect]
     Active Substance: RITUXIMAB
     Dosage: R-MA REGIMEN
     Route: 065
     Dates: start: 20220217
  7. PREDNISONE [Suspect]
     Active Substance: PREDNISONE
     Indication: Diffuse large B-cell lymphoma stage IV
     Dosage: R-DA-EPOCH REGIMEN; 4 CYCLES
     Route: 065
  8. VINCRISTINE [Suspect]
     Active Substance: VINCRISTINE
     Indication: Diffuse large B-cell lymphoma stage IV
     Dosage: R-DA-EPOCH REGIMEN; 4 CYCLES
     Route: 065
  9. CYCLOPHOSPHAMIDE [Suspect]
     Active Substance: CYCLOPHOSPHAMIDE
     Indication: Diffuse large B-cell lymphoma stage IV
     Dosage: R-DA-EPOCH REGIMEN; 4 CYCLES;
     Route: 065
  10. DOXORUBICIN [Suspect]
     Active Substance: DOXORUBICIN
     Indication: Diffuse large B-cell lymphoma stage IV
     Dosage: R-DA-EPOCH REGIMEN; 4 CYCLES;
     Route: 065
  11. METHOTREXATE [Suspect]
     Active Substance: METHOTREXATE
     Indication: Diffuse large B-cell lymphoma stage IV
     Dosage: R-DA-EPOCH REGIMEN; 4 CYCLES; HIGH-DOSE
     Route: 065
  12. IFOSFAMIDE [Suspect]
     Active Substance: IFOSFAMIDE
     Indication: Diffuse large B-cell lymphoma stage IV
     Dosage: R-ICE REGIMEN; 2 CYCLES
     Route: 065
  13. CARBOPLATIN [Suspect]
     Active Substance: CARBOPLATIN
     Indication: Diffuse large B-cell lymphoma stage IV
     Dosage: R-ICE REGIMEN; 2 CYCLES
     Route: 065
  14. CARMUSTINE [Suspect]
     Active Substance: CARMUSTINE
     Indication: Bone marrow conditioning regimen
     Dosage: BEAM CONDITIONING REGIMEN
     Route: 065
     Dates: start: 20220414
  15. CYTARABINE [Suspect]
     Active Substance: CYTARABINE
     Indication: Bone marrow conditioning regimen
     Dosage: R-MA REGIMEN
     Route: 065
     Dates: start: 20220217
  16. CYTARABINE [Suspect]
     Active Substance: CYTARABINE
     Dosage: BEAM CONDITIONING REGIMEN
     Route: 065
     Dates: start: 20220414
  17. MELPHALAN [Suspect]
     Active Substance: MELPHALAN
     Indication: Bone marrow conditioning regimen
     Dosage: BEAM CONDITIONING REGIMEN
     Route: 065
     Dates: start: 20220414
  18. IBRUTINIB [Suspect]
     Active Substance: IBRUTINIB
     Indication: Bone marrow conditioning regimen
     Dosage: R-MA REGIMEN
     Route: 065
     Dates: start: 20220217
  19. IBRUTINIB [Suspect]
     Active Substance: IBRUTINIB
     Dosage: BEAM CONDITIONING REGIMEN
     Route: 065
     Dates: start: 20220414

REACTIONS (4)
  - Non-Hodgkin^s lymphoma [Unknown]
  - Granulocytopenia [Unknown]
  - Therapy non-responder [Unknown]
  - Off label use [Unknown]

NARRATIVE: CASE EVENT DATE: 20220401
